FAERS Safety Report 8135591-0 (Version None)
Quarter: 2012Q1

REPORT INFORMATION
  Report Type: 
  Country: None (occurrence: None)
  Receive Date: 20120214
  Receipt Date: 20120131
  Transmission Date: 20120608
  Serious: Yes (Hospitalization, Other)
  Sender: FDA-Public Use
  Company Number: PHHY2012DE009196

PATIENT
  Weight: 86 kg

DRUGS (9)
  1. CALCIUM CHANNEL BLOCKERS [Concomitant]
  2. PRAVASTATIN [Concomitant]
     Indication: DYSLIPIDAEMIA
     Dosage: 10 MG, PER DAY
     Route: 048
     Dates: start: 20090618
  3. CLOPIDOGREL [Concomitant]
  4. BETA BLOCKING AGENTS [Concomitant]
  5. AMLODIPINE BESYLATE [Concomitant]
     Indication: HYPERTENSION
     Dosage: 10 MG, PER DAY
     Route: 048
     Dates: start: 20101026
  6. DIOVAN HCT [Suspect]
     Dosage: 160 MG, 12.5 MG PER DAY
     Route: 048
  7. RASILEZ [Suspect]
     Indication: HYPERTENSION
     Dosage: 150 MG, PER DAY
     Route: 048
     Dates: start: 20090211, end: 20090618
  8. SAXAGLIPTIN [Concomitant]
     Indication: TYPE 2 DIABETES MELLITUS
     Dosage: 5 MG, PER DAY
     Route: 048
     Dates: start: 20110505, end: 20111118
  9. PLATELET AGGREGATION INHIBITORS [Concomitant]

REACTIONS (3)
  - CORONARY ARTERY DISEASE [None]
  - CORONARY ARTERY STENOSIS [None]
  - ANGINA PECTORIS [None]
